FAERS Safety Report 9913198 (Version 1)
Quarter: 2014Q1

REPORT INFORMATION
  Report Type: Spontaneous
  Country: US (occurrence: None)
  Receive Date: 20140214
  Receipt Date: 20140214
  Transmission Date: 20141002
  Serious: Yes (Death)
  Sender: FDA-Public Use
  Company Number: AUR-APL-2014-01249

PATIENT
  Age: 55 Year
  Sex: Male

DRUGS (5)
  1. LAMOTRIGINE [Suspect]
  2. ZOLPIDEM [Suspect]
  3. DOXYLAMINE [Suspect]
     Route: 048
  4. TRAMADOL(TRAMADOL) [Suspect]
     Route: 048
  5. ACETAMINOPHEN [Suspect]

REACTIONS (4)
  - Completed suicide [None]
  - Exposure via ingestion [None]
  - Intentional self-injury [None]
  - Toxicity to various agents [None]
